FAERS Safety Report 25627795 (Version 4)
Quarter: 2025Q3

REPORT INFORMATION
  Report Type: Report from Study
  Country: US (occurrence: US)
  Receive Date: 20250731
  Receipt Date: 20250821
  Transmission Date: 20251021
  Serious: Yes (Hospitalization)
  Sender: ABBVIE
  Company Number: US-ABBVIE-6392907

PATIENT
  Age: 70 Year
  Sex: Male

DRUGS (10)
  1. VYALEV [Suspect]
     Active Substance: FOSCARBIDOPA\FOSLEVODOPA
     Indication: Parkinson^s disease
     Route: 058
     Dates: start: 20250718, end: 20250725
  2. MIDODRINE [Concomitant]
     Active Substance: MIDODRINE
     Indication: Hypotension
  3. VITAMIN D2 [Concomitant]
     Active Substance: ERGOCALCIFEROL
     Indication: Vitamin supplementation
  4. RIVASTIGMINE [Concomitant]
     Active Substance: RIVASTIGMINE
     Indication: Cognitive disorder
  5. QUETIAPINE [Concomitant]
     Active Substance: QUETIAPINE
     Indication: Bipolar disorder
  6. PANTOPRAZOLE [Concomitant]
     Active Substance: PANTOPRAZOLE
     Indication: Antacid therapy
  7. LAMOTRIGINE [Concomitant]
     Active Substance: LAMOTRIGINE
     Indication: Depression
  8. GABAPENTIN [Concomitant]
     Active Substance: GABAPENTIN
     Indication: Pain
  9. DULOXETINE [Concomitant]
     Active Substance: DULOXETINE
     Indication: Depression
  10. ROSUVASTATIN [Concomitant]
     Active Substance: ROSUVASTATIN
     Indication: Blood cholesterol abnormal

REACTIONS (11)
  - Renal failure [Not Recovered/Not Resolved]
  - Infusion site pain [Not Recovered/Not Resolved]
  - Drug hypersensitivity [Not Recovered/Not Resolved]
  - Asthenia [Not Recovered/Not Resolved]
  - Musculoskeletal disorder [Unknown]
  - Sepsis [Unknown]
  - Catheter site erythema [Unknown]
  - Fall [Unknown]
  - Acute kidney injury [Unknown]
  - Infusion site rash [Unknown]
  - Gait inability [Unknown]

NARRATIVE: CASE EVENT DATE: 20250101
